FAERS Safety Report 7024140-6 (Version None)
Quarter: 2010Q4

REPORT INFORMATION
  Report Type: 
  Country: None (occurrence: None)
  Receive Date: 20101001
  Receipt Date: 20100927
  Transmission Date: 20110411
  Serious: Yes (Death, Other)
  Sender: FDA-Public Use
  Company Number: JP-ROCHE-701440

PATIENT

DRUGS (4)
  1. TICLOPIDINE HCL [Suspect]
     Indication: ANTIPLATELET THERAPY
     Route: 065
  2. ASPIRIN [Suspect]
     Indication: ANTIPLATELET THERAPY
     Route: 065
  3. CLOPIDOGREL [Suspect]
     Indication: ANTIPLATELET THERAPY
     Dosage: LOADING DOSE
     Route: 065
  4. CLOPIDOGREL [Suspect]
     Dosage: FOR ATLEAST 1 DAY
     Route: 065

REACTIONS (10)
  - ACUTE CORONARY SYNDROME [None]
  - ANGINA UNSTABLE [None]
  - CARDIOVASCULAR DISORDER [None]
  - GASTROINTESTINAL HAEMORRHAGE [None]
  - HAEMORRHAGE URINARY TRACT [None]
  - MYOCARDIAL INFARCTION [None]
  - PERICARDIAL HAEMORRHAGE [None]
  - RETROPERITONEAL HAEMORRHAGE [None]
  - VASCULAR OPERATION [None]
  - VESSEL PUNCTURE SITE HAEMORRHAGE [None]
